FAERS Safety Report 10030948 (Version 2)
Quarter: 2014Q1

REPORT INFORMATION
  Report Type: Spontaneous
  Country: US (occurrence: US)
  Receive Date: 20140323
  Receipt Date: 20140323
  Transmission Date: 20141002
  Serious: Yes (Death)
  Sender: FDA-Public Use
  Company Number: US-GE HEALTHCARE MEDICAL DIAGNOSTICS-OSCN-PR-0806S-0390

PATIENT
  Age: 42 Year
  Sex: Male

DRUGS (11)
  1. OMNISCAN [Suspect]
     Indication: RENAL FAILURE
     Route: 042
     Dates: start: 20010807, end: 20010807
  2. OMNISCAN [Suspect]
     Indication: PANCREATIC MASS
     Route: 042
     Dates: start: 20030506, end: 20030506
  3. GADOLINIUM (UNSPECIFIED) [Suspect]
     Indication: METASTASIS
     Route: 042
     Dates: start: 19940318, end: 19940318
  4. GADOLINIUM (UNSPECIFIED) [Suspect]
     Indication: HEADACHE
     Route: 042
     Dates: start: 19941215, end: 19941215
  5. GADOLINIUM (UNSPECIFIED) [Suspect]
     Indication: PRODUCT USED FOR UNKNOWN INDICATION
     Route: 042
     Dates: start: 19951117, end: 19951117
  6. GADOLINIUM (UNSPECIFIED) [Suspect]
     Indication: VON HIPPEL-LINDAU DISEASE
     Route: 042
     Dates: start: 19961003, end: 19961003
  7. GADOLINIUM (UNSPECIFIED) [Suspect]
     Route: 042
     Dates: start: 19971121, end: 19971121
  8. GADOLINIUM (UNSPECIFIED) [Suspect]
     Route: 042
     Dates: start: 19890921, end: 19890921
  9. GADOLINIUM (UNSPECIFIED) [Suspect]
     Route: 042
     Dates: start: 19900608, end: 19900608
  10. MAGNEVIST [Suspect]
     Indication: VON HIPPEL-LINDAU DISEASE
     Route: 042
     Dates: start: 19911014, end: 19911014
  11. MAGNEVIST [Suspect]
     Route: 042
     Dates: start: 19940527, end: 19940527

REACTIONS (1)
  - Nephrogenic systemic fibrosis [Fatal]
